FAERS Safety Report 6879970-8 (Version None)
Quarter: 2010Q2

REPORT INFORMATION
  Report Type: 
  Country: None (occurrence: None)
  Receive Date: 20100630
  Receipt Date: 20091215
  Transmission Date: 20101027
  Serious: Yes (Other)
  Sender: FDA-Public Use
  Company Number: 2009291596

PATIENT
  Age: 4 Year
  Sex: Male
  Weight: 18.1 kg

DRUGS (4)
  1. ZITHROMAX [Suspect]
     Dosage: ORAL
     Route: 048
     Dates: start: 20091029, end: 20091029
  2. PREDNISONE [Concomitant]
  3. BENADRYL [Concomitant]
  4. XOPENEX [Concomitant]

REACTIONS (5)
  - ABDOMINAL DISCOMFORT [None]
  - ANAPHYLACTIC REACTION [None]
  - COUGH [None]
  - DYSPHONIA [None]
  - EYELID OEDEMA [None]
